FAERS Safety Report 9708281 (Version 2)
Quarter: 2013Q4

REPORT INFORMATION
  Report Type: Spontaneous
  Country: IT (occurrence: IT)
  Receive Date: 20131125
  Receipt Date: 20131223
  Transmission Date: 20140711
  Serious: Yes (Hospitalization)
  Sender: FDA-Public Use
  Company Number: IT-BRISTOL-MYERS SQUIBB COMPANY-19829845

PATIENT
  Age: 81 Year
  Sex: Female

DRUGS (12)
  1. METFORMIN HCL [Suspect]
     Indication: TYPE 2 DIABETES MELLITUS
     Route: 048
     Dates: start: 20120101, end: 20130707
  2. LASITONE [Suspect]
     Indication: HYPERTENSION
     Dosage: CAPS
     Route: 048
     Dates: start: 20120101, end: 20130707
  3. GLIBOMET [Suspect]
     Indication: TYPE 2 DIABETES MELLITUS
     Dosage: TABS
     Route: 048
     Dates: start: 20120101, end: 20130707
  4. ENALAPRIL MALEATE [Suspect]
     Indication: HYPERTENSION
  5. CATAPRESAN [Concomitant]
     Route: 062
  6. TRIFLUOPERAZINE HCL [Concomitant]
     Dosage: TABS
  7. AUGMENTIN [Concomitant]
     Indication: TOOTH ABSCESS
  8. PLAVIX TABS [Concomitant]
     Indication: THROMBOSIS PROPHYLAXIS
  9. ATORVASTATIN CALCIUM [Concomitant]
     Indication: DYSLIPIDAEMIA
  10. ALLOPURINOL [Concomitant]
     Indication: HYPERURICAEMIA
  11. BISOPROLOL [Concomitant]
     Indication: HYPERTENSION
  12. ACETYLSALICYLIC ACID [Concomitant]
     Indication: THROMBOSIS PROPHYLAXIS

REACTIONS (1)
  - Renal failure acute [Recovered/Resolved]
